FAERS Safety Report 12239708 (Version 1)
Quarter: 2016Q2

REPORT INFORMATION
  Report Type: Spontaneous
  Country: US (occurrence: US)
  Receive Date: 20160405
  Receipt Date: 20160405
  Transmission Date: 20160815
  Serious: Yes (Hospitalization, Other)
  Sender: FDA-Public Use
  Company Number: US-TEVA-647478USA

PATIENT
  Age: 43 Year
  Sex: Female

DRUGS (17)
  1. ONDANSETRON [Concomitant]
     Active Substance: ONDANSETRON
     Indication: NAUSEA
     Dosage: 24 MILLIGRAM DAILY; AS NEEDED
     Route: 048
  2. PENTAMIDINE [Concomitant]
     Active Substance: PENTAMIDINE
  3. DAUNORUBICIN [Suspect]
     Active Substance: DAUNORUBICIN
     Indication: ACUTE LYMPHOCYTIC LEUKAEMIA
     Dosage: D1,8, 15,22
     Route: 042
  4. VINCRISTINE [Suspect]
     Active Substance: VINCRISTINE
     Dosage: D1,8, 15,22
     Route: 042
  5. PEGASPARGASE [Suspect]
     Active Substance: PEGASPARGASE
     Dosage: 2500 UNITS/M2 D4
     Route: 042
  6. SERTRALINE [Concomitant]
     Active Substance: SERTRALINE HYDROCHLORIDE
     Route: 048
  7. FAMOTIDINE. [Concomitant]
     Active Substance: FAMOTIDINE
     Dosage: 20 MILLIGRAM DAILY;
     Route: 048
  8. METHOTREXATE [Suspect]
     Active Substance: METHOTREXATE
     Dosage: ON D8/29
     Route: 037
  9. HYDROMORPHONE [Concomitant]
     Active Substance: HYDROMORPHONE
     Indication: PAIN
     Dosage: 24 MILLIGRAM DAILY; AS NEEDED
     Route: 048
  10. ACYCLOVIR. [Concomitant]
     Active Substance: ACYCLOVIR
     Dosage: 800 MILLIGRAM DAILY;
     Route: 048
  11. METOCLOPRAMIDE. [Concomitant]
     Active Substance: METOCLOPRAMIDE
     Indication: NAUSEA
     Dosage: 30 MILLIGRAM DAILY; AS NEEDED
     Route: 048
  12. LORATADINE. [Concomitant]
     Active Substance: LORATADINE
     Dosage: 10 MILLIGRAM DAILY; AS NEEDED
     Route: 048
  13. KLONOPIN [Concomitant]
     Active Substance: CLONAZEPAM
     Indication: ANXIETY
     Dosage: 1 MILLIGRAM DAILY;
     Route: 048
  14. PREDNISONE. [Suspect]
     Active Substance: PREDNISONE
     Dosage: 60 MG/M2 DAILY; D1 -28
     Route: 048
  15. PEGASPARGASE [Suspect]
     Active Substance: PEGASPARGASE
     Dosage: 2500 UNITS/M2 D4
     Route: 030
  16. ABILIFY [Concomitant]
     Active Substance: ARIPIPRAZOLE
     Dosage: 2 MILLIGRAM DAILY;
     Route: 048
  17. ENOXAPARIN [Concomitant]
     Active Substance: ENOXAPARIN
     Dosage: 120 MG/0.8 ML

REACTIONS (14)
  - Rash pruritic [Recovered/Resolved]
  - Cough [Unknown]
  - Dyspnoea exertional [Recovered/Resolved]
  - Mental status changes [Unknown]
  - Aphasia [Unknown]
  - Hyponatraemia [Unknown]
  - Anaemia [Unknown]
  - Pulmonary embolism [Recovered/Resolved]
  - Peripheral swelling [Recovered/Resolved]
  - Lymphadenopathy [Unknown]
  - Nasopharyngitis [Unknown]
  - Chest discomfort [Unknown]
  - Chest discomfort [Recovered/Resolved]
  - Deep vein thrombosis [Recovered/Resolved]

NARRATIVE: CASE EVENT DATE: 20150817
